FAERS Safety Report 5034498-5 (Version None)
Quarter: 2006Q2

REPORT INFORMATION
  Report Type: 
  Country: None (occurrence: None)
  Receive Date: 20060623
  Receipt Date: 20060623
  Transmission Date: 20061013
  Serious: Yes (Other)
  Sender: FDA-Public Use
  Company Number: None

PATIENT
  Sex: Female

DRUGS (1)
  1. PRED FORTE 1% GENERIC FALCON PHARMACEUTICALS [Suspect]
     Dosage: 1 GTT

REACTIONS (4)
  - BURNING SENSATION [None]
  - LACRIMATION INCREASED [None]
  - PHARMACEUTICAL PRODUCT COMPLAINT [None]
  - VISION BLURRED [None]
